FAERS Safety Report 6242455-6 (Version None)
Quarter: 2009Q2

REPORT INFORMATION
  Report Type: 
  Country: None (occurrence: None)
  Receive Date: 20090622
  Receipt Date: 20090622
  Transmission Date: 20091009
  Serious: Yes (Other)
  Sender: FDA-Public Use
  Company Number: None

PATIENT
  Age: 13 Year
  Sex: Female
  Weight: 58.9676 kg

DRUGS (1)
  1. RISPERDAL [Suspect]
     Indication: ANXIETY
     Dates: start: 20050906, end: 20060709

REACTIONS (6)
  - BREAST ENLARGEMENT [None]
  - CEREBRAL DISORDER [None]
  - FATIGUE [None]
  - HEADACHE [None]
  - HYPERSOMNIA [None]
  - WEIGHT INCREASED [None]
